FAERS Safety Report 7590331-9 (Version None)
Quarter: 2011Q3

REPORT INFORMATION
  Report Type: 
  Country: None (occurrence: None)
  Receive Date: 20110705
  Receipt Date: 20110629
  Transmission Date: 20111222
  Serious: Yes (Other)
  Sender: FDA-Public Use
  Company Number: FR-BAYER-2011-056722

PATIENT
  Age: 73 Year
  Sex: Male

DRUGS (1)
  1. ULTRAVIST 150 [Suspect]
     Indication: SCAN
     Dosage: 1 DF, ONCE
     Route: 042
     Dates: start: 20110509, end: 20110509

REACTIONS (2)
  - JOINT SWELLING [None]
  - EXTRAVASATION [None]
